FAERS Safety Report 8037337-3 (Version None)
Quarter: 2012Q1

REPORT INFORMATION
  Report Type: 
  Country: None (occurrence: None)
  Receive Date: 20120111
  Receipt Date: 20120103
  Transmission Date: 20120608
  Serious: Yes (Hospitalization)
  Sender: FDA-Public Use
  Company Number: US-BAYER-2011-045956

PATIENT
  Age: 22 Year
  Sex: Female
  Weight: 62.132 kg

DRUGS (3)
  1. YASMIN [Suspect]
     Dosage: UNK
     Dates: start: 20060303, end: 20060307
  2. XANAX [Concomitant]
     Indication: ANXIETY
     Dosage: 0.35 MG, QD
     Route: 048
     Dates: start: 20040305, end: 20060214
  3. XANAX [Concomitant]
     Indication: SLEEP DISORDER

REACTIONS (12)
  - INJURY [None]
  - VIITH NERVE PARALYSIS [None]
  - CEREBRAL INFARCTION [None]
  - PAIN [None]
  - ANXIETY [None]
  - ANHEDONIA [None]
  - METAMORPHOPSIA [None]
  - DIZZINESS [None]
  - BALANCE DISORDER [None]
  - SINUS BRADYCARDIA [None]
  - HEADACHE [None]
  - EMOTIONAL DISTRESS [None]
